FAERS Safety Report 22251225 (Version 3)
Quarter: 2023Q4

REPORT INFORMATION
  Report Type: Spontaneous
  Country: US (occurrence: US)
  Receive Date: 20230425
  Receipt Date: 20231024
  Transmission Date: 20240110
  Serious: Yes (Death, Other)
  Sender: FDA-Public Use
  Company Number: US-PFIZER INC-PV202300068622

PATIENT
  Age: 43 Year
  Sex: Male
  Weight: 69.5 kg

DRUGS (2)
  1. BRAFTOVI [Suspect]
     Active Substance: ENCORAFENIB
     Indication: Plasma cell myeloma
     Dosage: 6 CAPSULES, 75 MG,  Q DAY
     Route: 048
  2. MEKTOVI [Suspect]
     Active Substance: BINIMETINIB
     Indication: Plasma cell myeloma
     Dosage: 3 TABS (15MG), Q12H
     Route: 048

REACTIONS (3)
  - Death [Fatal]
  - Immobile [Unknown]
  - Off label use [Unknown]

NARRATIVE: CASE EVENT DATE: 20231005
